FAERS Safety Report 12487943 (Version 5)
Quarter: 2024Q4

REPORT INFORMATION
  Report Type: Spontaneous
  Country: CH (occurrence: CH)
  Receive Date: 20160622
  Receipt Date: 20241112
  Transmission Date: 20250115
  Serious: Yes (Life-Threatening, Hospitalization, Other)
  Sender: ACCORD
  Company Number: None

PATIENT
  Age: 77 Year
  Sex: Female
  Weight: 53.0 kg

DRUGS (8)
  1. DOCETAXEL [Interacting]
     Active Substance: DOCETAXEL
     Indication: Invasive ductal breast carcinoma
     Dosage: 100 MG OR 75 MG/M^2 WEEKLY
  2. AMIODARONE [Interacting]
     Active Substance: AMIODARONE
     Indication: Palpitations
  3. PACLITAXEL [Interacting]
     Active Substance: PACLITAXEL
     Indication: Invasive ductal breast carcinoma
     Dosage: WEEKLY
  4. TORSEMIDE [Concomitant]
     Active Substance: TORSEMIDE
  5. ASPIRIN [Concomitant]
     Active Substance: ASPIRIN
  6. TRASTUZUMAB [Concomitant]
     Active Substance: TRASTUZUMAB
     Indication: Invasive ductal breast carcinoma
  7. ATORVASTATIN [Concomitant]
     Active Substance: ATORVASTATIN
  8. RAMIPRIL [Concomitant]
     Active Substance: RAMIPRIL

REACTIONS (11)
  - Blister [Recovered/Resolved]
  - Dysphagia [Recovered/Resolved]
  - Dehydration [Recovered/Resolved]
  - Mucosal inflammation [Recovered/Resolved]
  - Abdominal discomfort [Recovered/Resolved]
  - Drug clearance decreased [Recovered/Resolved]
  - White blood cell count increased [Recovered/Resolved]
  - Diarrhoea [Recovered/Resolved]
  - Vomiting [Recovered/Resolved]
  - Odynophagia [Recovered/Resolved]
  - Drug interaction [Recovered/Resolved]
